FAERS Safety Report 4531405-6 (Version None)
Quarter: 2004Q4

REPORT INFORMATION
  Report Type: 
  Country: None (occurrence: None)
  Receive Date: 20041216
  Receipt Date: 20041203
  Transmission Date: 20050328
  Serious: Yes (Hospitalization)
  Sender: FDA-Public Use
  Company Number: HQWYE105709AUG04

PATIENT
  Age: 51 Year
  Sex: Male
  Weight: 132.11 kg

DRUGS (17)
  1. RAPAMUNE [Suspect]
     Indication: PROPHYLAXIS AGAINST TRANSPLANT REJECTION
     Dosage: VARIED DOSE - CONCENTRATION CONTROLLED WITH ADMISSION DOSE OF 6 MG DAILY, ORAL
     Route: 048
     Dates: start: 20040128
  2. ATENOLOL [Concomitant]
  3. BICITRA (CITRIC ACID/SODIUM) [Concomitant]
  4. COUMADIN [Concomitant]
  5. FOLATE SODIUM (FOLATE SODIUM) [Concomitant]
  6. MIRALAX [Concomitant]
  7. PREVACID [Concomitant]
  8. RESTORIL [Concomitant]
  9. SENNA (SENNA) [Concomitant]
  10. VITAMIN C (ASCORBIC ACID) [Concomitant]
  11. MULTIVITAMINS, PLAIN (MULTIVITAMINS, PLAIN) [Concomitant]
  12. ZINC SULFATE (ZINC SULFATE) [Concomitant]
  13. ALLEGRA-D [Concomitant]
  14. ARANESP [Concomitant]
  15. CALCIUM (CALCIUM) [Concomitant]
  16. LORCET-HD [Concomitant]
  17. LORAZEPAM [Concomitant]

REACTIONS (18)
  - ANAEMIA [None]
  - BACTERAEMIA [None]
  - BLOOD ALBUMIN DECREASED [None]
  - BLOOD CALCIUM DECREASED [None]
  - BLOOD TRIGLYCERIDES INCREASED [None]
  - CONCOMITANT DISEASE PROGRESSION [None]
  - DEHYDRATION [None]
  - HEART SOUNDS ABNORMAL [None]
  - HERPES SIMPLEX [None]
  - IMMUNOSUPPRESSION [None]
  - KNEE OPERATION [None]
  - OEDEMA PERIPHERAL [None]
  - PLATELET COUNT DECREASED [None]
  - PROTEIN TOTAL DECREASED [None]
  - PROTHROMBIN TIME PROLONGED [None]
  - RENAL FAILURE ACUTE [None]
  - URINARY TRACT INFECTION [None]
  - WEIGHT DECREASED [None]
